FAERS Safety Report 6784458-9 (Version None)
Quarter: 2010Q2

REPORT INFORMATION
  Report Type: 
  Country: None (occurrence: None)
  Receive Date: 20100622
  Receipt Date: 20100614
  Transmission Date: 20101027
  Serious: Yes (Other)
  Sender: FDA-Public Use
  Company Number: US-AMGEN-QUU418364

PATIENT
  Sex: Female

DRUGS (1)
  1. ENBREL [Suspect]
     Indication: RHEUMATOID ARTHRITIS
     Route: 058
     Dates: start: 20040101, end: 20070101

REACTIONS (5)
  - FOETAL MALPRESENTATION [None]
  - FORCEPS DELIVERY [None]
  - PLACENTAL DISORDER [None]
  - PREGNANCY INDUCED HYPERTENSION [None]
  - VACUUM EXTRACTOR DELIVERY [None]
